FAERS Safety Report 9478677 (Version 2)
Quarter: 2015Q4

REPORT INFORMATION
  Report Type: Spontaneous
  Country: US (occurrence: US)
  Receive Date: 20130827
  Receipt Date: 20151123
  Transmission Date: 20160305
  Serious: No
  Sender: FDA-Public Use
  Company Number: US-009507513-1308USA009702

PATIENT
  Sex: Male

DRUGS (1)
  1. NASONEX [Suspect]
     Active Substance: MOMETASONE FUROATE
     Dosage: ONE SPRAY IN EACH NOSTRIL, QD
     Route: 045
     Dates: start: 2008

REACTIONS (2)
  - Product odour abnormal [Unknown]
  - Rhinitis [Unknown]
